FAERS Safety Report 6369937-0 (Version None)
Quarter: 2009Q3

REPORT INFORMATION
  Report Type: 
  Country: None (occurrence: None)
  Receive Date: 20090923
  Receipt Date: 20071001
  Transmission Date: 20100115
  Serious: Yes (Hospitalization, Other)
  Sender: FDA-Public Use
  Company Number: US-ASTRAZENECA-2006UW07965

PATIENT
  Age: 20287 Day
  Sex: Male
  Weight: 61.2 kg

DRUGS (23)
  1. SEROQUEL [Suspect]
     Indication: SCHIZOPHRENIA
     Route: 048
     Dates: start: 19990101, end: 20020101
  2. SEROQUEL [Suspect]
     Indication: BIPOLAR DISORDER
     Route: 048
     Dates: start: 19990101, end: 20020101
  3. SEROQUEL [Suspect]
     Indication: DEPRESSION
     Route: 048
     Dates: start: 19990101, end: 20020101
  4. SEROQUEL [Suspect]
     Dosage: 50MG-200MG
     Route: 048
     Dates: start: 20010706
  5. SEROQUEL [Suspect]
     Dosage: 50MG-200MG
     Route: 048
     Dates: start: 20010706
  6. SEROQUEL [Suspect]
     Dosage: 50MG-200MG
     Route: 048
     Dates: start: 20010706
  7. ABILIFY [Concomitant]
     Indication: PSYCHOTIC DISORDER
     Route: 048
  8. CLOZARIL [Concomitant]
  9. HALDOL [Concomitant]
     Dates: start: 19900101
  10. RISPERDAL [Concomitant]
  11. THORAZINE [Concomitant]
     Dates: start: 19900101
  12. ZYPREXA [Concomitant]
     Dates: start: 19900101
  13. WELLBUTRIN [Concomitant]
  14. TRAZODONE [Concomitant]
     Indication: INSOMNIA
     Route: 048
  15. BENZOTROPINE [Concomitant]
  16. DEPAKOTE ER [Concomitant]
     Indication: AFFECTIVE DISORDER
     Route: 048
  17. COGENTIN [Concomitant]
     Indication: EXTRAPYRAMIDAL DISORDER
     Dosage: STRENGTH-1MG, 2MG. DOSE-2MG DAILY AS REQUIRED
  18. ANTABUSE [Concomitant]
  19. ZOLOFT [Concomitant]
  20. EFFEXOR [Concomitant]
  21. BENADRYL [Concomitant]
     Indication: SLEEP DISORDER
     Dosage: 50-100 MG AT BED TIME
  22. ALBUTEROL [Concomitant]
     Indication: EMPHYSEMA
  23. NAPROXEN [Concomitant]
     Indication: ARTHRITIS

REACTIONS (2)
  - DYSKINESIA [None]
  - TARDIVE DYSKINESIA [None]
